FAERS Safety Report 4375448-4 (Version None)
Quarter: 2004Q2

REPORT INFORMATION
  Report Type: 
  Country: None (occurrence: None)
  Receive Date: 20040607
  Receipt Date: 20040527
  Transmission Date: 20050107
  Serious: Yes (Hospitalization)
  Sender: FDA-Public Use
  Company Number: DSA_80646_2004

PATIENT
  Age: 76 Year
  Sex: Male
  Weight: 63.5036 kg

DRUGS (12)
  1. XYREM [Suspect]
     Indication: NARCOLEPSY
     Dosage: 8 G NIGHTYLY PO
     Route: 048
     Dates: start: 20021201
  2. ECOTRIN [Suspect]
     Indication: CORONARY ARTERY DISEASE
     Dosage: DF
  3. IMIPRAMINE [Concomitant]
  4. XANAX [Concomitant]
  5. PROVIGIL [Concomitant]
  6. ZOCOR [Concomitant]
  7. K-DUR 10 [Concomitant]
  8. VASOTEC [Concomitant]
  9. NORVASC [Concomitant]
  10. TOPROL-XL [Concomitant]
  11. LANOXIN [Concomitant]
  12. FUROSEMIDE [Concomitant]

REACTIONS (1)
  - PEPTIC ULCER HAEMORRHAGE [None]
